FAERS Safety Report 4628257-2 (Version None)
Quarter: 2005Q2

REPORT INFORMATION
  Report Type: 
  Country: None (occurrence: None)
  Receive Date: 20050404
  Receipt Date: 20050324
  Transmission Date: 20051028
  Serious: Yes (Hospitalization)
  Sender: FDA-Public Use
  Company Number: 2005049679

PATIENT
  Age: 43 Year
  Sex: Female
  Weight: 65 kg

DRUGS (2)
  1. VIRACEPT [Suspect]
     Indication: HIV INFECTION
     Dosage: 10 IN 1 D, ORAL
     Route: 048
     Dates: start: 19971008
  2. COMBIVIR [Suspect]
     Indication: HIV INFECTION
     Dosage: BID, ORAL
     Route: 048
     Dates: start: 19971008

REACTIONS (5)
  - ACUTE VESTIBULAR SYNDROME [None]
  - DEAFNESS NEUROSENSORY [None]
  - DIZZINESS [None]
  - TINNITUS [None]
  - VERTIGO [None]
